FAERS Safety Report 7499252-3 (Version None)
Quarter: 2011Q2

REPORT INFORMATION
  Report Type: 
  Country: None (occurrence: None)
  Receive Date: 20110524
  Receipt Date: 20110513
  Transmission Date: 20111010
  Serious: Yes (Death)
  Sender: FDA-Public Use
  Company Number: JP-NOVOPROD-328213

PATIENT
  Age: 41 Year
  Sex: Female

DRUGS (5)
  1. LIPITOR [Concomitant]
     Dosage: UNK
     Route: 048
  2. GLIMEPIRIDE [Concomitant]
     Dosage: UNK
     Route: 048
  3. VICTOZA [Suspect]
     Indication: DIABETES MELLITUS
     Dosage: UNK
     Route: 058
     Dates: start: 20110427
  4. SHOUSEIRYUUTOU [Concomitant]
     Dosage: UNK
     Route: 048
  5. NELBIS [Concomitant]
     Dosage: UNK
     Route: 048

REACTIONS (1)
  - CARDIO-RESPIRATORY ARREST [None]
